FAERS Safety Report 9288016 (Version 1)
Quarter: 2013Q2

REPORT INFORMATION
  Report Type: Spontaneous
  Country: US (occurrence: US)
  Receive Date: 20130514
  Receipt Date: 20130514
  Transmission Date: 20140414
  Serious: Yes (Other)
  Sender: FDA-Public Use
  Company Number: US-ELI_LILLY_AND_COMPANY-US201305002877

PATIENT
  Age: 48 Year
  Sex: Female
  Weight: 111.11 kg

DRUGS (1)
  1. HUMALOG LISPRO [Suspect]

REACTIONS (2)
  - Systemic lupus erythematosus [Unknown]
  - Blood glucose decreased [Unknown]
